FAERS Safety Report 4652838-3 (Version None)
Quarter: 2005Q2

REPORT INFORMATION
  Report Type: 
  Country: None (occurrence: None)
  Receive Date: 20050502
  Receipt Date: 20050420
  Transmission Date: 20051028
  Serious: Yes (Hospitalization)
  Sender: FDA-Public Use
  Company Number: 2005-127613-NL

PATIENT
  Age: 36 Year
  Sex: Female

DRUGS (5)
  1. DESOLETT [Suspect]
     Indication: ORAL CONTRACEPTION
     Dosage: DF, ORAL
     Route: 048
     Dates: start: 20010606, end: 20041003
  2. CLONAZEPAM [Concomitant]
  3. CLOZAPINE [Concomitant]
  4. LORAZEPAM [Concomitant]
  5. SERTRALINE HYDROCHLORIDE [Concomitant]

REACTIONS (2)
  - INTRACRANIAL VENOUS SINUS THROMBOSIS [None]
  - MENINGEAL NEOPLASM [None]
